FAERS Safety Report 8085638-5 (Version None)
Quarter: 2012Q1

REPORT INFORMATION
  Report Type: 
  Country: None (occurrence: None)
  Receive Date: 20120128
  Receipt Date: 20110404
  Transmission Date: 20120608
  Serious: No
  Sender: FDA-Public Use
  Company Number: US-ABBOTT-11P-163-0716278-00

PATIENT
  Age: 63 Year
  Sex: Female

DRUGS (2)
  1. BONIVA [Concomitant]
     Indication: OSTEOPOROSIS
  2. HUMIRA [Suspect]
     Indication: PSORIATIC ARTHROPATHY

REACTIONS (4)
  - ASTHMA [None]
  - EAR PAIN [None]
  - COUGH [None]
  - RHINORRHOEA [None]
